FAERS Safety Report 6555740-5 (Version None)
Quarter: 2010Q1

REPORT INFORMATION
  Report Type: 
  Country: None (occurrence: None)
  Receive Date: 20100128
  Receipt Date: 20100105
  Transmission Date: 20100710
  Serious: Yes (Other)
  Sender: FDA-Public Use
  Company Number: PHEH2007US00579

PATIENT
  Sex: Male

DRUGS (25)
  1. TEGRETOL [Suspect]
     Dosage: 200, 400, 800 MG DAILY AND TWICE DAILY
     Dates: start: 19970425, end: 20040324
  2. TEGRETOL [Suspect]
     Indication: SLEEP DISORDER
     Dosage: 200, 400, 800 MG DAILY AND TWICE DAILY
     Route: 048
     Dates: start: 19970425, end: 20040324
  3. TEGRETOL [Suspect]
     Indication: AFFECTIVE DISORDER
  4. TEGRETOL [Suspect]
     Indication: DEPRESSION
  5. TEGRETOL [Suspect]
     Indication: POST-TRAUMATIC STRESS DISORDER
  6. CARBAMAZEPINE [Suspect]
     Indication: SLEEP DISORDER
     Dosage: 200, 400, 800 MG
     Dates: start: 19970425, end: 20040324
  7. CARBAMAZEPINE [Suspect]
     Indication: AFFECTIVE DISORDER
  8. CARBAMAZEPINE [Suspect]
     Indication: DEPRESSION
  9. INH [Concomitant]
     Dosage: 30 MG / DAILY
     Route: 048
  10. VITAMIN B6 [Concomitant]
     Dosage: 50 MG / DAILY
     Route: 048
  11. ELAVIL [Concomitant]
     Dosage: 50 MG / HS
     Route: 048
  12. MOTRIN [Concomitant]
     Dosage: 600 MG / TID
  13. BACTROBAN                               /NET/ [Concomitant]
     Dosage: UNK
  14. BENADRYL ^ACHE^ [Concomitant]
     Dosage: UNK
  15. AMITRIPTYLINE [Concomitant]
     Dosage: UNK
     Route: 048
  16. VICODIN [Concomitant]
     Dosage: UNK
  17. ALBUTEROL [Concomitant]
     Dosage: UNK
  18. QVAR 40 [Concomitant]
     Dosage: 80 MCG / BID
  19. SUDAFED 12 HOUR [Concomitant]
     Dosage: 60 MG / BID
     Route: 048
  20. OCEAN NASAL SPRAY [Concomitant]
     Dosage: UNK
  21. C.T.M. [Concomitant]
     Dosage: 8 MG / BID
     Route: 048
  22. PREDNISONE TAB [Concomitant]
     Dosage: UNK
  23. THEO-DUR [Concomitant]
     Dosage: UNK
  24. VISTARIL [Concomitant]
     Dosage: 50 MG / HS
  25. SINEQUAN [Concomitant]
     Dosage: 100 MG / HS

REACTIONS (24)
  - ANTISOCIAL PERSONALITY DISORDER [None]
  - ANXIETY [None]
  - ASTHMA [None]
  - COLONOSCOPY [None]
  - CONSTIPATION [None]
  - COUGH [None]
  - DECREASED APPETITE [None]
  - DEPRESSED MOOD [None]
  - EMOTIONAL DISTRESS [None]
  - FACIAL PALSY [None]
  - GASTROINTESTINAL MOTILITY DISORDER [None]
  - GASTROINTESTINAL PAIN [None]
  - HAEMATOCHEZIA [None]
  - HYPOTHYROIDISM [None]
  - MIGRAINE [None]
  - MUSCLE TWITCHING [None]
  - NERVOUSNESS [None]
  - PAIN [None]
  - PROCTALGIA [None]
  - RECTAL HAEMORRHAGE [None]
  - TREATMENT NONCOMPLIANCE [None]
  - TREMOR [None]
  - VOMITING [None]
  - WEIGHT DECREASED [None]
